FAERS Safety Report 10759747 (Version 1)
Quarter: 2015Q1

REPORT INFORMATION
  Report Type: Spontaneous
  Country: US (occurrence: US)
  Receive Date: 20150203
  Receipt Date: 20150203
  Transmission Date: 20150721
  Serious: Yes (Hospitalization, Other)
  Sender: FDA-Public Use
  Company Number: US-GLAXOSMITHKLINE-US2015GSK013834

PATIENT
  Sex: Female

DRUGS (9)
  1. CLARITIN [Suspect]
     Active Substance: LORATADINE
     Indication: WHEEZING
  2. FLONASE [Suspect]
     Active Substance: FLUTICASONE PROPIONATE
     Indication: WHEEZING
  3. MUCINEX [Suspect]
     Active Substance: GUAIFENESIN
     Indication: COUGH
  4. CLARITIN [Suspect]
     Active Substance: LORATADINE
     Indication: ASTHMA
     Dosage: UNK
     Dates: start: 201412
  5. CLARITIN [Suspect]
     Active Substance: LORATADINE
     Indication: COUGH
  6. FLONASE [Suspect]
     Active Substance: FLUTICASONE PROPIONATE
     Indication: COUGH
  7. MUCINEX [Suspect]
     Active Substance: GUAIFENESIN
     Indication: ASTHMA
     Dosage: UNK
     Dates: start: 201412
  8. FLONASE [Suspect]
     Active Substance: FLUTICASONE PROPIONATE
     Indication: ASTHMA
     Dosage: UNK
     Dates: start: 201412
  9. MUCINEX [Suspect]
     Active Substance: GUAIFENESIN
     Indication: WHEEZING

REACTIONS (8)
  - Lung infection [Unknown]
  - Hypotension [Unknown]
  - Dizziness [Unknown]
  - Decreased appetite [Unknown]
  - Feeling abnormal [Unknown]
  - Drug ineffective [Unknown]
  - Fluid intake reduced [Unknown]
  - Vision blurred [Unknown]

NARRATIVE: CASE EVENT DATE: 201412
